FAERS Safety Report 6504327-9 (Version None)
Quarter: 2009Q4

REPORT INFORMATION
  Report Type: 
  Country: None (occurrence: None)
  Receive Date: 20091217
  Receipt Date: 20091208
  Transmission Date: 20100525
  Serious: Yes (Hospitalization)
  Sender: FDA-Public Use
  Company Number: JP-WATSON-2009-10608

PATIENT
  Age: 45 Year
  Sex: Female
  Weight: 69.796 kg

DRUGS (7)
  1. FAMOTIDINE [Suspect]
     Indication: NAUSEA
     Dosage: UNK
     Route: 048
     Dates: start: 20090626
  2. SUNITINIB MALATE [Suspect]
     Indication: BREAST CANCER
     Dosage: 25 MG, DAILY
     Route: 048
     Dates: start: 20090716, end: 20090718
  3. SUNITINIB MALATE [Suspect]
     Dosage: 37.5 MG, DAILY
     Route: 048
     Dates: start: 20090619, end: 20090715
  4. CAPECITABINE [Suspect]
     Indication: BREAST CANCER
     Dosage: 1750 MG, BID
     Route: 048
     Dates: start: 20090619
  5. PYRIDOXAL PHOSPHATE [Concomitant]
     Indication: DRUG USE FOR UNKNOWN INDICATION
     Dosage: UNK
     Route: 065
     Dates: start: 20090619, end: 20090715
  6. UREA [Concomitant]
     Indication: DRUG USE FOR UNKNOWN INDICATION
     Dosage: UNK
     Route: 065
     Dates: start: 20090619
  7. GASTROINTESTINAL MEDICINE (SM POWDER) [Concomitant]
     Indication: NAUSEA
     Dosage: UNK
     Route: 065

REACTIONS (1)
  - GASTROENTERITIS [None]
